FAERS Safety Report 6958079-9 (Version None)
Quarter: 2010Q3

REPORT INFORMATION
  Report Type: 
  Country: None (occurrence: None)
  Receive Date: 20100831
  Receipt Date: 20100826
  Transmission Date: 20110219
  Serious: Yes (Other)
  Sender: FDA-Public Use
  Company Number: US-BRISTOL-MYERS SQUIBB COMPANY-15258171

PATIENT
  Sex: Male

DRUGS (1)
  1. ABILIFY [Suspect]

REACTIONS (4)
  - BIPOLAR I DISORDER [None]
  - TARDIVE DYSKINESIA [None]
  - WEIGHT DECREASED [None]
  - WEIGHT INCREASED [None]
